FAERS Safety Report 8536981 (Version 4)
Quarter: 2013Q4

REPORT INFORMATION
  Report Type: Spontaneous
  Country: US (occurrence: US)
  Receive Date: 20120430
  Receipt Date: 20131101
  Transmission Date: 20140711
  Serious: Yes (Hospitalization)
  Sender: FDA-Public Use
  Company Number: US-MSD-1204USA03831

PATIENT
  Sex: Male

DRUGS (3)
  1. HYZAAR [Suspect]
     Indication: HYPERTENSION
     Dosage: 100MG-12.5
     Route: 048
     Dates: start: 2010, end: 2012
  2. HYZAAR [Suspect]
     Dosage: 50MG-12.5
     Route: 048
     Dates: start: 2012
  3. PRADAXA [Concomitant]

REACTIONS (2)
  - Drug ineffective [Recovered/Resolved]
  - No adverse event [Unknown]
